FAERS Safety Report 23772332 (Version 1)
Quarter: 2024Q2

REPORT INFORMATION
  Report Type: Report from Study
  Country: GB (occurrence: GB)
  Receive Date: 20240423
  Receipt Date: 20240423
  Transmission Date: 20240716
  Serious: Yes (Other)
  Sender: FDA-Public Use
  Company Number: GB-ARGENX-2023-ARGX-GB001033

PATIENT

DRUGS (2)
  1. VYVGART [Suspect]
     Active Substance: EFGARTIGIMOD ALFA-FCAB
     Indication: Myasthenia gravis
     Dosage: UNK
     Route: 042
  2. PREDNISOLONE [Concomitant]
     Active Substance: PREDNISOLONE
     Indication: Product used for unknown indication
     Dosage: 12 MG
     Route: 065

REACTIONS (22)
  - Myasthenia gravis [Unknown]
  - Myasthenia gravis [Unknown]
  - Contusion [Not Recovered/Not Resolved]
  - Pain in extremity [Not Recovered/Not Resolved]
  - Feeling abnormal [Unknown]
  - Anaemia [Unknown]
  - Myasthenia gravis [Unknown]
  - Symptom recurrence [Unknown]
  - Vitamin B12 decreased [Unknown]
  - Restless legs syndrome [Unknown]
  - Paraesthesia [Unknown]
  - Myasthenia gravis [Unknown]
  - Mood altered [Unknown]
  - Condition aggravated [Unknown]
  - Inappropriate schedule of product administration [Unknown]
  - Myasthenia gravis [Unknown]
  - Hypoaesthesia [Unknown]
  - Eye swelling [Unknown]
  - Swelling face [Unknown]
  - Weight decreased [Unknown]
  - Dose calculation error [Unknown]
  - Incorrect dose administered [Unknown]

NARRATIVE: CASE EVENT DATE: 20230324
